FAERS Safety Report 11107469 (Version 3)
Quarter: 2015Q4

REPORT INFORMATION
  Report Type: Spontaneous
  Country: US (occurrence: US)
  Receive Date: 20150512
  Receipt Date: 20151022
  Transmission Date: 20160304
  Serious: Yes (Life-Threatening, Hospitalization, Other)
  Sender: FDA-Public Use
  Company Number: US-BAYER-2015-216611

PATIENT
  Age: 34 Year
  Sex: Female
  Weight: 61.22 kg

DRUGS (8)
  1. FLONASE [Concomitant]
     Active Substance: FLUTICASONE PROPIONATE
     Dosage: UNK
     Dates: start: 2003
  2. MIRENA [Suspect]
     Active Substance: LEVONORGESTREL
     Indication: CONTRACEPTION
     Dosage: 20 MCG/24HR, CONT
     Route: 015
     Dates: start: 20080828, end: 20120823
  3. FLUOXETINE [Concomitant]
     Active Substance: FLUOXETINE HYDROCHLORIDE
     Dosage: UNK
     Dates: start: 2003, end: 2013
  4. PAXIL [Concomitant]
     Active Substance: PAROXETINE HYDROCHLORIDE
     Dosage: UNK
     Dates: start: 2008, end: 2009
  5. LORATADINE. [Concomitant]
     Active Substance: LORATADINE
     Dosage: UNK
     Dates: start: 2003
  6. EFFEXOR [Concomitant]
     Active Substance: VENLAFAXINE HYDROCHLORIDE
     Indication: ANXIETY
  7. LORAZEPAM. [Concomitant]
     Active Substance: LORAZEPAM
     Dosage: UNK
     Dates: start: 2003
  8. EFFEXOR [Concomitant]
     Active Substance: VENLAFAXINE HYDROCHLORIDE
     Indication: DEPRESSION
     Dosage: UNK
     Dates: start: 2003

REACTIONS (10)
  - Injury [None]
  - Infection [None]
  - Foetal death [None]
  - Pregnancy with contraceptive device [None]
  - Stillbirth [None]
  - Abdominal pain [None]
  - Drug ineffective [None]
  - Pain [None]
  - General physical health deterioration [None]
  - Uterine perforation [None]

NARRATIVE: CASE EVENT DATE: 2011
